FAERS Safety Report 22641415 (Version 1)
Quarter: 2023Q2

REPORT INFORMATION
  Report Type: Spontaneous
  Country: CA (occurrence: CA)
  Receive Date: 20230626
  Receipt Date: 20230626
  Transmission Date: 20230722
  Serious: Yes (Other)
  Sender: FDA-Public Use
  Company Number: CA-PFIZER INC-202300229477

PATIENT
  Age: 72 Year
  Sex: Female

DRUGS (2)
  1. ABRILADA [Suspect]
     Active Substance: ADALIMUMAB-AFZB
     Indication: Psoriatic arthropathy
     Dosage: 40 MG EVERY 2 WEEK
     Route: 058
     Dates: start: 20230125
  2. METHOTREXATE [Concomitant]
     Active Substance: METHOTREXATE
     Dosage: DOSAGE INFO: UNKNOWN
     Route: 065

REACTIONS (2)
  - Cataract [Unknown]
  - Somnolence [Unknown]

NARRATIVE: CASE EVENT DATE: 20230601
